FAERS Safety Report 21588749 (Version 1)
Quarter: 2022Q4

REPORT INFORMATION
  Report Type: Spontaneous
  Country: AU (occurrence: AU)
  Receive Date: 20221114
  Receipt Date: 20221114
  Transmission Date: 20230113
  Serious: Yes (Hospitalization, Other)
  Sender: FDA-Public Use
  Company Number: AU-HETERO-HET2022AU02711

PATIENT
  Age: 48 Year
  Sex: Male
  Weight: 90 kg

DRUGS (18)
  1. FENOFIBRATE [Suspect]
     Active Substance: FENOFIBRATE
     Indication: Product used for unknown indication
     Dosage: 145 MG, QD
     Route: 065
  2. ATORVASTATIN CALCIUM [Suspect]
     Active Substance: ATORVASTATIN CALCIUM
     Indication: Product used for unknown indication
     Dosage: 80 MG, QD
     Route: 065
  3. BREXPIPRAZOLE [Suspect]
     Active Substance: BREXPIPRAZOLE
     Indication: Product used for unknown indication
     Dosage: 4 MILLIGRAM, MANE
     Route: 048
  4. CARVEDILOL HYDROCHLORIDE [Suspect]
     Active Substance: CARVEDILOL HYDROCHLORIDE
     Indication: Hypertension
     Dosage: 25 MILLIGRAM, BID
     Route: 065
  5. CARVEDILOL HYDROCHLORIDE [Suspect]
     Active Substance: CARVEDILOL HYDROCHLORIDE
     Dosage: 25 MILLIGRAM, DAILY MANE
     Route: 065
  6. EMPAGLIFLOZIN [Suspect]
     Active Substance: EMPAGLIFLOZIN
     Indication: Hypertension
     Dosage: 10 MILLIGRAM, MANE
     Route: 065
  7. FLUOXETINE HYDROCHLORIDE [Suspect]
     Active Substance: FLUOXETINE HYDROCHLORIDE
     Indication: Product used for unknown indication
     Dosage: 40 MILLIGRAM, MANE
     Route: 048
  8. GLICLAZIDE [Suspect]
     Active Substance: GLICLAZIDE
     Indication: Product used for unknown indication
     Dosage: 120 MILLIGRAM, QD
     Route: 065
  9. GLICLAZIDE [Suspect]
     Active Substance: GLICLAZIDE
     Dosage: 60 MG MANE
  10. LITHIUM [Suspect]
     Active Substance: LITHIUM
     Indication: Product used for unknown indication
     Dosage: 1000 MILLIGRAM, NOCT.
     Route: 048
  11. LITHIUM [Suspect]
     Active Substance: LITHIUM
     Dosage: 750 MILLIGRAM MANE
     Route: 048
  12. METFORMIN HYDROCHLORIDE [Suspect]
     Active Substance: METFORMIN HYDROCHLORIDE
     Indication: Product used for unknown indication
     Dosage: 1 GRAM, BID
     Route: 065
  13. PERINDOPRIL [Suspect]
     Active Substance: PERINDOPRIL
     Indication: Hypertension
     Dosage: 10 MILLIGRAM, MANE
     Route: 065
  14. SEMAGLUTIDE [Suspect]
     Active Substance: SEMAGLUTIDE
     Indication: Product used for unknown indication
     Dosage: 1 MILLIGRAM WEEKLY
     Route: 058
  15. ZIPRASIDONE [Suspect]
     Active Substance: ZIPRASIDONE
     Indication: Product used for unknown indication
     Dosage: 120 MILLIGRAM, MANE
     Route: 065
  16. ZIPRASIDONE [Suspect]
     Active Substance: ZIPRASIDONE
     Dosage: 80 MILLIGRAM, BID
     Route: 048
  17. CLOZAPINE [Suspect]
     Active Substance: CLOZAPINE
     Indication: Product used for unknown indication
     Dosage: 500 MG
     Route: 065
     Dates: start: 2001
  18. CLOZAPINE [Suspect]
     Active Substance: CLOZAPINE
     Dosage: UNK
     Route: 065
     Dates: start: 20220704

REACTIONS (5)
  - Schizophrenia [Unknown]
  - Blood pressure decreased [Recovered/Resolved]
  - Dyspnoea [Unknown]
  - Dizziness [Unknown]
  - Mental disorder [Unknown]
